FAERS Safety Report 25259540 (Version 1)
Quarter: 2025Q2

REPORT INFORMATION
  Report Type: Spontaneous
  Country: US (occurrence: None)
  Receive Date: 20250430
  Receipt Date: 20250430
  Transmission Date: 20250717
  Serious: Yes (Other)
  Sender: FDA-CTU
  Company Number: None

PATIENT
  Age: 71 Year
  Sex: Male
  Weight: 113.4 kg

DRUGS (7)
  1. LEQVIO [Suspect]
     Active Substance: INCLISIRAN SODIUM
     Indication: Low density lipoprotein increased
     Route: 058
     Dates: start: 20241029
  2. LEQVIO [Concomitant]
     Active Substance: INCLISIRAN SODIUM
  3. LEVOTHYROXINE [Concomitant]
     Active Substance: LEVOTHYROXINE
  4. MELOXICAM [Concomitant]
     Active Substance: MELOXICAM
  5. FEXOFENADINE [Concomitant]
     Active Substance: FEXOFENADINE HYDROCHLORIDE
  6. MENAQUINONE 6 [Concomitant]
     Active Substance: MENAQUINONE 6
  7. VITAMIN D3 [Concomitant]
     Active Substance: CHOLECALCIFEROL

REACTIONS (6)
  - Arthralgia [None]
  - Arthralgia [None]
  - Arthralgia [None]
  - Post procedural complication [None]
  - Inflammation [None]
  - Arthralgia [None]

NARRATIVE: CASE EVENT DATE: 20250213
